FAERS Safety Report 10460467 (Version 2)
Quarter: 2014Q3

REPORT INFORMATION
  Report Type: Spontaneous
  Country: US (occurrence: FR)
  Receive Date: 20140918
  Receipt Date: 20140926
  Transmission Date: 20150326
  Serious: Yes (Hospitalization, Other)
  Sender: FDA-Public Use
  Company Number: 2014SP005288

PATIENT
  Age: 33 Year
  Sex: Female
  Weight: 72.5 kg

DRUGS (18)
  1. ENBREL [Suspect]
     Active Substance: ETANERCEPT
     Indication: RHEUMATOID ARTHRITIS
     Route: 058
     Dates: start: 200409, end: 200509
  2. ENBREL [Suspect]
     Active Substance: ETANERCEPT
     Indication: RHEUMATOID ARTHRITIS
     Dates: start: 200605, end: 201005
  3. NEORAL [Concomitant]
     Active Substance: CYCLOSPORINE
     Dates: start: 200509
  4. METHOTREXATE [Suspect]
     Active Substance: METHOTREXATE
     Indication: RHEUMATOID ARTHRITIS
     Route: 030
     Dates: start: 2003, end: 200509
  5. METHOTREXATE [Suspect]
     Active Substance: METHOTREXATE
     Indication: RHEUMATOID ARTHRITIS
     Route: 030
     Dates: start: 200705, end: 2008
  6. AZATHIOPRINE. [Concomitant]
     Active Substance: AZATHIOPRINE
     Dates: start: 200509
  7. UVEDOSE [Concomitant]
     Active Substance: CHOLECALCIFEROL
  8. DIFFU K [Concomitant]
     Active Substance: POTASSIUM CHLORIDE
  9. ENBREL [Suspect]
     Active Substance: ETANERCEPT
     Indication: RHEUMATOID ARTHRITIS
     Dates: start: 201009, end: 201108
  10. CORTANCYL [Concomitant]
     Active Substance: PREDNISONE
     Dates: start: 20120203
  11. ADALIMUMAB [Concomitant]
     Active Substance: ADALIMUMAB
     Dates: start: 201005, end: 2010
  12. METHOTREXATE [Suspect]
     Active Substance: METHOTREXATE
     Indication: RHEUMATOID ARTHRITIS
     Route: 030
     Dates: start: 200605
  13. EUPANTOL [Concomitant]
     Active Substance: PANTOPRAZOLE SODIUM
  14. METHOTREXATE [Suspect]
     Active Substance: METHOTREXATE
     Indication: RHEUMATOID ARTHRITIS
     Dates: start: 20120203
  15. METHOTREXATE [Suspect]
     Active Substance: METHOTREXATE
     Indication: RHEUMATOID ARTHRITIS
     Route: 048
     Dates: start: 201111
  16. FOSAMAX [Concomitant]
     Active Substance: ALENDRONATE SODIUM
  17. METHOTREXATE [Suspect]
     Active Substance: METHOTREXATE
     Indication: RHEUMATOID ARTHRITIS
     Route: 030
     Dates: start: 201005, end: 201101
  18. SPECIAFOLDINE [Concomitant]
     Active Substance: FOLIC ACID

REACTIONS (26)
  - Hepatic steatosis [Unknown]
  - Cough [Unknown]
  - Transaminases increased [Unknown]
  - Nasal congestion [Unknown]
  - VIIth nerve paralysis [Unknown]
  - Cataract [Unknown]
  - Arthralgia [Not Recovered/Not Resolved]
  - Anosmia [Not Recovered/Not Resolved]
  - Facial spasm [Unknown]
  - Sarcoidosis [Recovered/Resolved with Sequelae]
  - Depression [Unknown]
  - Headache [Unknown]
  - Migraine [Unknown]
  - Anxiety [Unknown]
  - Loss of libido [Unknown]
  - Blindness [Unknown]
  - Weight decreased [Unknown]
  - Dyspnoea [Unknown]
  - Eye pain [Unknown]
  - Asthenia [Unknown]
  - Dyskinesia [Unknown]
  - Hepatocellular injury [Unknown]
  - Suicidal ideation [Recovered/Resolved]
  - Ageusia [Unknown]
  - Infertility [Unknown]
  - Dysgeusia [Unknown]

NARRATIVE: CASE EVENT DATE: 200601
